FAERS Safety Report 23272949 (Version 3)
Quarter: 2024Q1

REPORT INFORMATION
  Report Type: Spontaneous
  Country: US (occurrence: US)
  Receive Date: 20231207
  Receipt Date: 20240122
  Transmission Date: 20240410
  Serious: No
  Sender: FDA-Public Use
  Company Number: US-INCYTE CORPORATION-2023IN012581

PATIENT

DRUGS (1)
  1. JAKAFI [Suspect]
     Active Substance: RUXOLITINIB
     Indication: Neoplasm malignant
     Dosage: 15 MILLIGRAM, BID
     Route: 048
     Dates: start: 202310

REACTIONS (10)
  - Pain [Unknown]
  - Constipation [Unknown]
  - Anorectal discomfort [Unknown]
  - Dyschezia [Unknown]
  - Abnormal faeces [Unknown]
  - Abdominal distension [Unknown]
  - Flatulence [Unknown]
  - Off label use [Unknown]
  - Peripheral swelling [Unknown]
  - Cyanosis [Unknown]

NARRATIVE: CASE EVENT DATE: 20231001
